FAERS Safety Report 4476595-9 (Version None)
Quarter: 2004Q4

REPORT INFORMATION
  Report Type: 
  Country: None (occurrence: None)
  Receive Date: 20041013
  Receipt Date: 20040929
  Transmission Date: 20050328
  Serious: Yes (Hospitalization)
  Sender: FDA-Public Use
  Company Number: A03200403305

PATIENT
  Age: 47 Year
  Sex: Female

DRUGS (2)
  1. PLAVIX [Suspect]
     Indication: THERAPEUTIC PROCEDURE
     Dosage: 75 MG QD - ORAL
     Route: 048
     Dates: start: 20040927, end: 20040927
  2. ACETYLSALICYLIC ACID [Concomitant]

REACTIONS (5)
  - CARDIAC FAILURE [None]
  - INFLUENZA LIKE ILLNESS [None]
  - LIVER FUNCTION TEST ABNORMAL [None]
  - PNEUMONIA [None]
  - RESPIRATORY FAILURE [None]
